FAERS Safety Report 21413777 (Version 1)
Quarter: 2022Q4

REPORT INFORMATION
  Report Type: Spontaneous
  Country: US (occurrence: US)
  Receive Date: 20221006
  Receipt Date: 20221006
  Transmission Date: 20230113
  Serious: No
  Sender: FDA-Public Use
  Company Number: US-ALLERGAN-2222826US

PATIENT

DRUGS (2)
  1. QULIPTA [Suspect]
     Active Substance: ATOGEPANT
     Indication: Headache
     Dosage: UNK
  2. QULIPTA [Suspect]
     Active Substance: ATOGEPANT
     Indication: Migraine

REACTIONS (1)
  - Hepatic enzyme increased [Unknown]
